FAERS Safety Report 7329630-4 (Version None)
Quarter: 2011Q1

REPORT INFORMATION
  Report Type: 
  Country: None (occurrence: None)
  Receive Date: 20110223
  Receipt Date: 20110207
  Transmission Date: 20110831
  Serious: Yes (Death, Hospitalization)
  Sender: FDA-Public Use
  Company Number: 1000018857

PATIENT
  Age: 43 Year
  Sex: Female

DRUGS (10)
  1. BLINDED THERAPY (APIXABAN AND MATCHING WARFARIN SODIUM PLACEBO OR MATC [Suspect]
     Indication: THROMBOSIS PROPHYLAXIS
     Dosage: (ORAL) (ORAL)
     Route: 048
     Dates: start: 20090904, end: 20110113
  2. BLINDED THERAPY (APIXABAN AND MATCHING WARFARIN SODIUM PLACEBO OR MATC [Suspect]
     Indication: THROMBOSIS PROPHYLAXIS
     Dosage: (ORAL) (ORAL)
     Route: 048
     Dates: start: 20110114
  3. METFORMIN HCL [Concomitant]
  4. EZETROL (EZETIMIBE) (EZETIMIBE) [Concomitant]
  5. ATIVAN [Suspect]
  6. GLICLAZIDE (GLICLAZIDE) (GLICLAZIDE) [Concomitant]
  7. METOPROLOL TARTRATE [Suspect]
  8. ESCITALOPRAM OXALATE [Suspect]
     Indication: DEPRESSION
     Dosage: ORAL
     Route: 048
  9. CLONAZEPAM [Suspect]
  10. PROPAFENONE (PROPAFENONE HYDROCHLORIDE) [Suspect]
     Dates: start: 20100301

REACTIONS (5)
  - HYPOXIA [None]
  - DEPRESSED LEVEL OF CONSCIOUSNESS [None]
  - SUICIDAL IDEATION [None]
  - OVERDOSE [None]
  - HYPOTENSION [None]
